FAERS Safety Report 7233644-2 (Version None)
Quarter: 2011Q1

REPORT INFORMATION
  Report Type: 
  Country: None (occurrence: None)
  Receive Date: 20110113
  Receipt Date: 20110113
  Transmission Date: 20110831
  Serious: Yes (Hospitalization)
  Sender: FDA-Public Use
  Company Number: None

PATIENT
  Sex: Female
  Weight: 73.6 kg

DRUGS (6)
  1. CYCLOPHOSPHAMIDE [Suspect]
     Dosage: 17995 MG
  2. TOPOTECAN [Suspect]
     Dosage: 305 MG
  3. VINCRISTINE SULFATE [Suspect]
     Dosage: 40 MG
  4. IFOSFAMIDE [Suspect]
     Dosage: 101750 MG
  5. DOXORUBICIN HYDROCHLORIDE [Suspect]
     Dosage: 604 MG
  6. ETOPOSIDE [Suspect]
     Dosage: 2680 MG

REACTIONS (1)
  - ACUTE MYELOID LEUKAEMIA [None]
